FAERS Safety Report 4838320-9 (Version None)
Quarter: 2005Q4

REPORT INFORMATION
  Report Type: 
  Country: None (occurrence: None)
  Receive Date: 20051123
  Receipt Date: 20051114
  Transmission Date: 20060501
  Serious: Yes (Death, Hospitalization, Other)
  Sender: FDA-Public Use
  Company Number: 2005-10-0037

PATIENT
  Age: 49 Year
  Sex: Male
  Weight: 57 kg

DRUGS (2)
  1. PEG-INTRON [Suspect]
     Indication: HEPATITIS C
     Dosage: 150 ?G QWK SUBCUTANEOUS
     Route: 058
     Dates: start: 20041214
  2. RIBAVIRIN [Suspect]
     Indication: HEPATITIS C
     Dosage: 1200 MG QD ORAL
     Route: 048
     Dates: start: 20041214

REACTIONS (14)
  - AGITATION [None]
  - ASPIRATION [None]
  - BACTERAEMIA [None]
  - ELECTROMECHANICAL DISSOCIATION [None]
  - EMPYEMA [None]
  - FLUID OVERLOAD [None]
  - GENERAL PHYSICAL HEALTH DETERIORATION [None]
  - HYPOXIA [None]
  - ILEUS [None]
  - PNEUMONIA [None]
  - RESPIRATORY ARREST [None]
  - SCHIZOPHRENIA [None]
  - SEPTIC SHOCK [None]
  - STAPHYLOCOCCAL INFECTION [None]
